FAERS Safety Report 16588548 (Version 1)
Quarter: 2019Q3

REPORT INFORMATION
  Report Type: Report from Study
  Country: US (occurrence: US)
  Receive Date: 20190718
  Receipt Date: 20190718
  Transmission Date: 20191004
  Serious: Yes (Other)
  Sender: FDA-Public Use
  Company Number: US-ROCHE-2351108

PATIENT
  Age: 33 Year
  Sex: Male
  Weight: 113.5 kg

DRUGS (2)
  1. OCREVUS [Suspect]
     Active Substance: OCRELIZUMAB
     Indication: RELAPSING-REMITTING MULTIPLE SCLEROSIS
     Dosage: ONGOING: YES
     Route: 042
     Dates: start: 201906
  2. PROBIOTIC 30 BILLION [Concomitant]
     Dosage: ONGOING: YES
     Route: 048

REACTIONS (5)
  - Pruritus [Recovered/Resolved]
  - Nausea [Recovered/Resolved]
  - Multiple sclerosis relapse [Recovered/Resolved]
  - Pharyngitis streptococcal [Recovered/Resolved]
  - Erythema [Recovered/Resolved]

NARRATIVE: CASE EVENT DATE: 201906
